FAERS Safety Report 16702145 (Version 1)
Quarter: 2019Q3

REPORT INFORMATION
  Report Type: Spontaneous
  Country: US (occurrence: US)
  Receive Date: 20190813
  Receipt Date: 20190813
  Transmission Date: 20191004
  Serious: Yes (Hospitalization)
  Sender: FDA-Public Use
  Company Number: None

PATIENT
  Age: 46 Year
  Sex: Male

DRUGS (5)
  1. TACROLIMUS. [Suspect]
     Active Substance: TACROLIMUS
     Indication: CORONARY ANGIOPLASTY
     Dosage: ?          OTHER FREQUENCY:1 MORNING,2 NIGHT;?
     Route: 048
     Dates: start: 20180803
  2. CRESTOR/ENALAPR/HTCZ [Concomitant]
  3. SIROLIMUS. [Suspect]
     Active Substance: SIROLIMUS
     Indication: CORONARY ANGIOPLASTY
     Route: 048
     Dates: start: 20160114
  4. ASPIRIN/CLOPIDOGREL [Concomitant]
  5. METOPROL SUC/ULORIC [Concomitant]

REACTIONS (1)
  - Stent placement [None]

NARRATIVE: CASE EVENT DATE: 20190805
